FAERS Safety Report 10600504 (Version 3)
Quarter: 2015Q1

REPORT INFORMATION
  Report Type: Spontaneous
  Country: US (occurrence: US)
  Receive Date: 20141124
  Receipt Date: 20150210
  Transmission Date: 20150720
  Serious: Yes (Other)
  Sender: FDA-Public Use
  Company Number: US-BEH-2014046436

PATIENT
  Age: 30 Year
  Sex: Female

DRUGS (7)
  1. HIZENTRA [Suspect]
     Active Substance: HUMAN IMMUNOGLOBULIN G
     Indication: IMMUNODEFICIENCY COMMON VARIABLE
     Dosage: ??-JUN-2014 TO SEP-2014
     Route: 058
     Dates: end: 20140918
  2. HIZENTRA [Suspect]
     Active Substance: HUMAN IMMUNOGLOBULIN G
     Indication: IMMUNODEFICIENCY COMMON VARIABLE
     Dosage: ??-JUN-2014 TO SEP-2014
     Route: 058
     Dates: end: 20140918
  3. TRIVORA [Concomitant]
     Active Substance: ETHINYL ESTRADIOL\LEVONORGESTREL
  4. ALBUTEROL. [Concomitant]
     Active Substance: ALBUTEROL
     Indication: ASTHMA
     Dosage: START DATE: SEP-2012, 1 VIAL
     Route: 055
  5. PROAIR HFA [Concomitant]
     Active Substance: ALBUTEROL SULFATE
     Indication: ASTHMA
     Dosage: START DATE: SEP-2012, 2 PUFFS
     Route: 055
  6. ACCOLATE [Concomitant]
     Active Substance: ZAFIRLUKAST
     Indication: ASTHMA
     Dosage: START DATE: SEP-2012
     Route: 048
  7. SYMBICORT [Concomitant]
     Active Substance: BUDESONIDE\FORMOTEROL FUMARATE DIHYDRATE
     Indication: ASTHMA
     Dosage: START DATE: SEP-2012, 2 PUFFS
     Route: 055

REACTIONS (6)
  - Administration site erythema [Recovered/Resolved]
  - Cellulitis [Recovered/Resolved]
  - Unevaluable event [Recovered/Resolved]
  - Infusion site abscess [Recovered/Resolved]
  - Administration site pain [Recovered/Resolved]
  - Antibiotic therapy [Recovered/Resolved]

NARRATIVE: CASE EVENT DATE: 20140612
